FAERS Safety Report 7786396-1 (Version None)
Quarter: 2011Q3

REPORT INFORMATION
  Report Type: 
  Country: None (occurrence: None)
  Receive Date: 20110928
  Receipt Date: 20110928
  Transmission Date: 20111222
  Serious: Yes (Hospitalization)
  Sender: FDA-Public Use
  Company Number: None

PATIENT
  Age: 68 Year
  Sex: Female
  Weight: 49.4421 kg

DRUGS (1)
  1. DOXIL [Suspect]
     Indication: OVARIAN CANCER RECURRENT
     Dosage: 60 MG X 1 IV
     Route: 042
     Dates: start: 20110513

REACTIONS (4)
  - FEELING HOT [None]
  - THROAT IRRITATION [None]
  - DIZZINESS [None]
  - INFUSION RELATED REACTION [None]
